FAERS Safety Report 21937394 (Version 1)
Quarter: 2023Q1

REPORT INFORMATION
  Report Type: Spontaneous
  Country: US (occurrence: None)
  Receive Date: 20230201
  Receipt Date: 20230201
  Transmission Date: 20230418
  Serious: No
  Sender: FDA-Public Use
  Company Number: None

PATIENT

DRUGS (2)
  1. NALOXONE HCL [Suspect]
     Active Substance: NALOXONE HYDROCHLORIDE
  2. EPINEPHRINE [Suspect]
     Active Substance: EPINEPHRINE

REACTIONS (6)
  - Wrong product stored [None]
  - Product label confusion [None]
  - Product appearance confusion [None]
  - Product size issue [None]
  - Product shape issue [None]
  - Product packaging confusion [None]
